FAERS Safety Report 19093731 (Version 2)
Quarter: 2021Q4

REPORT INFORMATION
  Report Type: Spontaneous
  Country: US (occurrence: US)
  Receive Date: 20210405
  Receipt Date: 20211126
  Transmission Date: 20220304
  Serious: Yes (Death, Other)
  Sender: FDA-Public Use
  Company Number: US-BAUSCH-BL-2021-010266

PATIENT
  Age: 25 Year
  Sex: Female

DRUGS (1)
  1. MINOCYCLINE [Suspect]
     Active Substance: MINOCYCLINE HYDROCHLORIDE
     Indication: Acne cystic
     Route: 065

REACTIONS (3)
  - Giant cell myocarditis [Fatal]
  - Hypersensitivity myocarditis [Unknown]
  - Drug hypersensitivity [Unknown]
